FAERS Safety Report 11890052 (Version 1)
Quarter: 2016Q1

REPORT INFORMATION
  Report Type: Spontaneous
  Country: US (occurrence: US)
  Receive Date: 20160105
  Receipt Date: 20160105
  Transmission Date: 20160526
  Serious: Yes (Other)
  Sender: FDA-Public Use
  Company Number: US-BAYER-2016-001405

PATIENT
  Age: 60 Year
  Sex: Male
  Weight: 68.27 kg

DRUGS (1)
  1. CORICIDIN HBP CHEST CONGESTION AND COUGH [Suspect]
     Active Substance: DEXTROMETHORPHAN HYDROBROMIDE\GUAIFENESIN
     Indication: NASOPHARYNGITIS
     Dosage: 2 DF, IN EVERY 4 HOURS
     Route: 048
     Dates: start: 20160101, end: 20160102

REACTIONS (3)
  - Blood pressure increased [None]
  - Drug ineffective [None]
  - Product use issue [None]
